FAERS Safety Report 8414693-5 (Version None)
Quarter: 2012Q2

REPORT INFORMATION
  Report Type: 
  Country: None (occurrence: None)
  Receive Date: 20120605
  Receipt Date: 20120529
  Transmission Date: 20120825
  Serious: Yes (Other)
  Sender: FDA-Public Use
  Company Number: FR-MERCK-1205FRA00059

PATIENT
  Age: 4 Year
  Sex: Male

DRUGS (3)
  1. FLUTICASONE PROPIONATE AND SALMETEROL XINAFOATE [Concomitant]
     Route: 055
  2. MOMETASONE FUROATE [Concomitant]
     Route: 065
  3. SINGULAIR [Suspect]
     Indication: ASTHMA
     Route: 048
     Dates: start: 20110706, end: 20110809

REACTIONS (4)
  - SLEEP DISORDER [None]
  - ABNORMAL BEHAVIOUR [None]
  - AGITATION [None]
  - SUICIDE ATTEMPT [None]
